FAERS Safety Report 21219053 (Version 2)
Quarter: 2022Q3

REPORT INFORMATION
  Report Type: Spontaneous
  Country: FR (occurrence: FR)
  Receive Date: 20220816
  Receipt Date: 20220819
  Transmission Date: 20221026
  Serious: Yes (Other)
  Sender: FDA-Public Use
  Company Number: None

PATIENT
  Age: 48 Year
  Sex: Female
  Weight: 60 kg

DRUGS (9)
  1. IPILIMUMAB [Suspect]
     Active Substance: IPILIMUMAB
     Indication: Malignant melanoma
     Dosage: 3RD CYCLE
     Route: 042
     Dates: start: 20220308, end: 20220308
  2. IPILIMUMAB [Suspect]
     Active Substance: IPILIMUMAB
     Dosage: 2ND CYCLE
     Route: 042
     Dates: start: 20220302, end: 20220302
  3. IPILIMUMAB [Suspect]
     Active Substance: IPILIMUMAB
     Dosage: 4TH CYCLE
     Route: 042
     Dates: start: 20220413, end: 20220413
  4. IPILIMUMAB [Suspect]
     Active Substance: IPILIMUMAB
     Dosage: 1ST CYCLE
     Route: 042
     Dates: start: 20220207, end: 20220207
  5. NIVOLUMAB [Suspect]
     Active Substance: NIVOLUMAB
     Indication: Malignant melanoma
     Dosage: 1ST CYCLE
     Route: 042
     Dates: start: 20220207, end: 20220207
  6. NIVOLUMAB [Suspect]
     Active Substance: NIVOLUMAB
     Dosage: 4TH CYCLE
     Route: 042
     Dates: start: 20220413, end: 20220413
  7. NIVOLUMAB [Suspect]
     Active Substance: NIVOLUMAB
     Dosage: 2ND CYCLE
     Route: 042
     Dates: start: 20220302, end: 20220302
  8. NIVOLUMAB [Suspect]
     Active Substance: NIVOLUMAB
     Dosage: 3RD CYCLE
     Route: 042
     Dates: start: 20220308, end: 20220308
  9. NIVOLUMAB [Suspect]
     Active Substance: NIVOLUMAB
     Dosage: MAINTENANCE
     Route: 042
     Dates: start: 20220524

REACTIONS (3)
  - Colitis [Recovered/Resolved]
  - Uveitis [Recovered/Resolved]
  - Off label use [Unknown]

NARRATIVE: CASE EVENT DATE: 20220401
